FAERS Safety Report 8108755 (Version 5)
Quarter: 2012Q4

REPORT INFORMATION
  Report Type: 
  Country: AT (occurrence: AT)
  Receive Date: 20110826
  Receipt Date: 20121002
  Transmission Date: 20130627
  Serious: Yes (Hospitalization)
  Sender: FDA-Public Use
  Company Number: AT-AMGEN-KDC407767

PATIENT
  Age: 45 Year
  Sex: Female
  Weight: 63 kg

DRUGS (4)
  1. NEULASTA [Suspect]
     Indication: PRODUCT USED FOR UNKNOWN INDICATION
     Dosage: 6 mg, UNK
     Dates: start: 20100409, end: 20100409
  2. DOCETAXEL [Concomitant]
     Dosage: 165 mg, q3wk
     Route: 042
     Dates: start: 20100225
  3. TRASTUZUMAB [Concomitant]
     Indication: BREAST CANCER
     Dosage: 366 mg, q3wk
     Route: 042
     Dates: start: 20100225
  4. BEVACIZUMAB [Concomitant]
     Indication: BREAST CANCER
     Dosage: 915 mg, q3wk
     Route: 042
     Dates: start: 20100225

REACTIONS (2)
  - Neutropenic infection [Recovered/Resolved]
  - Device related infection [Recovered/Resolved]
